FAERS Safety Report 18457170 (Version 3)
Quarter: 2020Q4

REPORT INFORMATION
  Report Type: Spontaneous
  Country: US (occurrence: US)
  Receive Date: 20201103
  Receipt Date: 20201130
  Transmission Date: 20210114
  Serious: No
  Sender: FDA-Public Use
  Company Number: US-PFIZER INC-2019272335

PATIENT
  Age: 54 Year
  Sex: Male
  Weight: 106.5 kg

DRUGS (1)
  1. GENOTROPIN [Suspect]
     Active Substance: SOMATROPIN
     Indication: GROWTH HORMONE DEFICIENCY
     Dosage: 0.5 MG, DAILY
     Route: 058

REACTIONS (2)
  - Device breakage [Unknown]
  - Device use error [Unknown]
